FAERS Safety Report 4797457-3 (Version None)
Quarter: 2005Q4

REPORT INFORMATION
  Report Type: 
  Country: None (occurrence: None)
  Receive Date: 20051006
  Receipt Date: 20051006
  Transmission Date: 20060501
  Serious: Yes (Life-Threatening, Hospitalization, Disabling)
  Sender: FDA-Public Use
  Company Number: None

PATIENT
  Age: 39 Year
  Sex: Male

DRUGS (8)
  1. GLIPIZIDE [Suspect]
     Dosage: 10 MG PO OTO
     Route: 048
  2. METOPROLOL [Concomitant]
  3. LANSOPRAZOLE [Concomitant]
  4. MINOXIDIL [Concomitant]
  5. CLONIDINE [Concomitant]
  6. ENALAPRIL [Concomitant]
  7. AMLODIPINE [Concomitant]
  8. WARFARIN [Concomitant]

REACTIONS (6)
  - BLOOD GLUCOSE ABNORMAL [None]
  - DRUG ADMINISTRATION ERROR [None]
  - DRUG DISPENSING ERROR [None]
  - LOSS OF CONSCIOUSNESS [None]
  - MALAISE [None]
  - SOMNOLENCE [None]
